FAERS Safety Report 8427609-2 (Version None)
Quarter: 2012Q2

REPORT INFORMATION
  Report Type: 
  Country: None (occurrence: None)
  Receive Date: 20120611
  Receipt Date: 20120531
  Transmission Date: 20120825
  Serious: Yes (Other)
  Sender: FDA-Public Use
  Company Number: US-ASTRAZENECA-2012SE36729

PATIENT
  Age: 61 Year
  Sex: Female

DRUGS (1)
  1. PULMICORT [Suspect]
     Route: 055

REACTIONS (7)
  - DRUG DOSE OMISSION [None]
  - DYSPNOEA [None]
  - FALL [None]
  - MALAISE [None]
  - CERVICAL VERTEBRAL FRACTURE [None]
  - UPPER LIMB FRACTURE [None]
  - OFF LABEL USE [None]
